FAERS Safety Report 20746186 (Version 1)
Quarter: 2022Q2

REPORT INFORMATION
  Report Type: Report from Study
  Country: US (occurrence: US)
  Receive Date: 20220425
  Receipt Date: 20220425
  Transmission Date: 20220721
  Serious: No
  Sender: FDA-Public Use
  Company Number: US-MIRM-000354

PATIENT
  Age: 6 Year
  Sex: Male
  Weight: 17.237 kg

DRUGS (10)
  1. LIVMARLI [Suspect]
     Active Substance: MARALIXIBAT CHLORIDE
     Indication: Alagille syndrome
     Route: 048
     Dates: start: 20211130
  2. 2652724 (GLOBALC3Sep19): Quillivant [Concomitant]
     Indication: Product used for unknown indication
  3. 1327014 (GLOBALC3Sep19): Melatonin [Concomitant]
     Indication: Product used for unknown indication
  4. 3641461 (GLOBALC3Sep19): Aquadek multivitamins [Concomitant]
     Indication: Product used for unknown indication
  5. 1262333 (GLOBALC3Sep19): Aspirin [Concomitant]
     Indication: Product used for unknown indication
  6. 1243133 (GLOBALC3Sep19): Actigall [Concomitant]
     Indication: Product used for unknown indication
  7. 1228025 (GLOBALC3Sep19): Periactin [Concomitant]
     Indication: Product used for unknown indication
  8. 2928632 (GLOBALC3Sep19): Enalapril [Concomitant]
     Indication: Product used for unknown indication
  9. 1945345 (GLOBALC3Sep19): Clonidine [Concomitant]
     Indication: Product used for unknown indication
  10. 1610724 (GLOBALC3Sep19): Risperidone [Concomitant]
     Indication: Product used for unknown indication

REACTIONS (2)
  - Pruritus [Unknown]
  - Blood bilirubin increased [Unknown]

NARRATIVE: CASE EVENT DATE: 20220201
